FAERS Safety Report 5889911-8 (Version None)
Quarter: 2008Q3

REPORT INFORMATION
  Report Type: 
  Country: None (occurrence: None)
  Receive Date: 20080919
  Receipt Date: 20080911
  Transmission Date: 20090109
  Serious: Yes (Other)
  Sender: FDA-Public Use
  Company Number: PHNU2008DE01639

PATIENT
  Sex: Male

DRUGS (4)
  1. IMMUNOSPORIN [Suspect]
     Dosage: 200 MG/DAY
     Route: 048
     Dates: start: 20080305, end: 20080425
  2. XYZAL [Concomitant]
     Dosage: UNK
     Route: 048
  3. CIPRAMIL [Concomitant]
     Dosage: 20 MG PER DAY
     Route: 048
  4. VOTUAR [Concomitant]
     Dosage: 20 MG PER DAY
     Route: 048

REACTIONS (1)
  - MACULAR DEGENERATION [None]
